FAERS Safety Report 6062745-X (Version None)
Quarter: 2009Q1

REPORT INFORMATION
  Report Type: 
  Country: None (occurrence: None)
  Receive Date: 20090203
  Receipt Date: 20090126
  Transmission Date: 20090719
  Serious: Yes (Death)
  Sender: FDA-Public Use
  Company Number: US-GENENTECH-276148

PATIENT
  Sex: Male
  Weight: 71 kg

DRUGS (17)
  1. BEVACIZUMAB [Suspect]
     Indication: NON-SMALL CELL LUNG CANCER
     Dosage: 15 MG, Q3W
     Route: 042
     Dates: start: 20081110
  2. BEVACIZUMAB [Suspect]
     Dosage: 15 MG/KG, Q3W
     Route: 042
     Dates: start: 20081201, end: 20090112
  3. CARBOPLATIN [Suspect]
     Indication: CHEMOTHERAPY
     Dosage: 6 AUC, Q3W
     Route: 042
     Dates: start: 20081110, end: 20090112
  4. PACLITAXEL [Suspect]
     Indication: CHEMOTHERAPY
     Dosage: 200 MG/M2, Q3W
     Route: 042
     Dates: start: 20081110, end: 20090112
  5. OMEPRAZOLE [Suspect]
     Indication: GASTROOESOPHAGEAL REFLUX DISEASE
     Dosage: UNK
     Route: 048
     Dates: start: 20080101, end: 20090123
  6. CEFTAZIDIME [Concomitant]
     Indication: DRUG USE FOR UNKNOWN INDICATION
     Dosage: 2 MG, UNK
     Route: 042
     Dates: start: 20090124, end: 20090124
  7. ASPIRIN [Concomitant]
     Indication: PROPHYLAXIS
     Dosage: 81 MG, QD
     Route: 048
     Dates: start: 20080101, end: 20080123
  8. ONDANSETRON HYDROCHLORIDE [Concomitant]
     Indication: NAUSEA
     Dosage: 8 MG, Q8H
     Route: 048
     Dates: start: 20081105, end: 20090123
  9. MORPHINE [Concomitant]
     Indication: PAIN
     Dosage: 30 MG, Q4H
     Route: 048
     Dates: start: 20081022, end: 20090123
  10. LORAZEPAM [Concomitant]
     Indication: ANXIETY
     Dosage: 2 MG, PRN
     Route: 048
     Dates: start: 20081205, end: 20090123
  11. DEXAMETHASONE [Concomitant]
     Indication: IMMUNOSUPPRESSION
     Dosage: 4 MG, BID
     Route: 048
     Dates: start: 20081105, end: 20090123
  12. LEVOFLOXACIN [Concomitant]
     Indication: DRUG USE FOR UNKNOWN INDICATION
     Dosage: 750 MG, UNK
     Route: 042
     Dates: start: 20090124, end: 20090124
  13. CEFOTAXIME [Concomitant]
     Indication: UPPER RESPIRATORY TRACT INFECTION
     Dosage: UNK MG, UNK
     Route: 042
     Dates: start: 20090124, end: 20090124
  14. MORPHINE [Concomitant]
     Indication: PAIN
     Dosage: 45 MG, TID
     Route: 048
     Dates: start: 20081022, end: 20090123
  15. ZOMETA [Concomitant]
     Indication: OSTEOPOROSIS PROPHYLAXIS
     Dosage: 4 MG, Q3W
     Route: 058
     Dates: start: 20081110, end: 20090112
  16. METOPROLOL TARTRATE [Concomitant]
     Indication: HYPERTENSION
     Dosage: 50 MG, BID
     Route: 048
     Dates: start: 20080101, end: 20090123
  17. COLACE [Concomitant]
     Indication: CONSTIPATION
     Dosage: 100 MG, BID
     Route: 048
     Dates: start: 20081105, end: 20090123

REACTIONS (4)
  - PNEUMOTHORAX [None]
  - RESPIRATORY DISTRESS [None]
  - RESPIRATORY FAILURE [None]
  - SEPSIS [None]
